FAERS Safety Report 15372308 (Version 3)
Quarter: 2018Q4

REPORT INFORMATION
  Report Type: Report from Study
  Country: US (occurrence: US)
  Receive Date: 20180911
  Receipt Date: 20181005
  Transmission Date: 20190204
  Serious: Yes (Life-Threatening, Hospitalization)
  Sender: FDA-Public Use
  Company Number: PHHY2018US089000

PATIENT
  Age: 57 Year
  Sex: Male
  Weight: 54.2 kg

DRUGS (3)
  1. TRAMETINIB [Suspect]
     Active Substance: TRAMETINIB
     Indication: LANGERHANS^ CELL HISTIOCYTOSIS
     Dosage: 0.5 MG, UNK
     Route: 048
     Dates: start: 20180813, end: 20180824
  2. TRAMETINIB [Suspect]
     Active Substance: TRAMETINIB
     Dosage: 0.5 MG, UNK
     Route: 048
     Dates: start: 20180917
  3. TRAMETINIB [Suspect]
     Active Substance: TRAMETINIB
     Dosage: 0.5 MG, UNK
     Route: 048
     Dates: start: 20180927

REACTIONS (10)
  - Hyperkalaemia [Recovered/Resolved with Sequelae]
  - Dyspnoea [Recovered/Resolved with Sequelae]
  - Dehydration [Recovered/Resolved with Sequelae]
  - Diarrhoea [Unknown]
  - Chest pain [Unknown]
  - Dysarthria [Unknown]
  - Confusional state [Recovered/Resolved with Sequelae]
  - Hypoglycaemia [Recovered/Resolved with Sequelae]
  - Hypertension [Recovered/Resolved with Sequelae]
  - Hyperkalaemia [Recovered/Resolved with Sequelae]

NARRATIVE: CASE EVENT DATE: 20180822
